FAERS Safety Report 16907875 (Version 2)
Quarter: 2019Q4

REPORT INFORMATION
  Report Type: Spontaneous
  Country: GB (occurrence: GB)
  Receive Date: 20191011
  Receipt Date: 20191024
  Transmission Date: 20200122
  Serious: Yes (Other)
  Sender: FDA-Public Use
  Company Number: GB-SUN PHARMACEUTICAL INDUSTRIES LTD-2019RR-223402

PATIENT
  Sex: Female

DRUGS (1)
  1. FYREMADEL 0,25 MG/0,5 ML SOLUTION FOR INJECTION IN PRE-FILLED SYRINGE [Suspect]
     Active Substance: GANIRELIX ACETATE
     Indication: MENSTRUAL CYCLE MANAGEMENT
     Dosage: UNK, TAKEN OVER 9 DAYS
     Route: 065

REACTIONS (1)
  - Off label use [Unknown]
